FAERS Safety Report 6417044-0 (Version None)
Quarter: 2009Q4

REPORT INFORMATION
  Report Type: 
  Country: None (occurrence: None)
  Receive Date: 20091026
  Receipt Date: 20091013
  Transmission Date: 20100525
  Serious: Yes (Hospitalization)
  Sender: FDA-Public Use
  Company Number: 2009MB000067

PATIENT

DRUGS (5)
  1. KEFLEX [Suspect]
     Indication: URINARY TRACT INFECTION
     Dosage: UNK; UNK
  2. VANDETANIB [Suspect]
     Indication: COLORECTAL CANCER
     Dosage: 100 MG; QD; PO
     Route: 048
  3. FLUOROURACIL [Concomitant]
  4. IRINOTECAN HCL [Concomitant]
  5. LEUCOVORIN CALCIUM [Concomitant]

REACTIONS (2)
  - PHOTOSENSITIVITY REACTION [None]
  - RASH ERYTHEMATOUS [None]
